FAERS Safety Report 7920379 (Version 4)
Quarter: 2013Q1

REPORT INFORMATION
  Report Type: Spontaneous
  Country: FR (occurrence: FR)
  Receive Date: 20110429
  Receipt Date: 20130328
  Transmission Date: 20140127
  Serious: Yes (Hospitalization)
  Sender: FDA-Public Use
  Company Number: FR-SANOFI-AVENTIS-2011SA024590

PATIENT
  Age: 72 Year
  Sex: Male
  Weight: 81 kg

DRUGS (6)
  1. MULTAQ [Suspect]
     Indication: ATRIAL FIBRILLATION
     Route: 048
     Dates: start: 20110215, end: 20110222
  2. FLECAINE [Concomitant]
     Indication: CARDIOMYOPATHY
     Route: 065
     Dates: end: 201102
  3. KARDEGIC [Concomitant]
     Indication: THROMBOSIS PROPHYLAXIS
     Route: 048
     Dates: start: 2006
  4. COTAREG ^NOVARTIS^ [Concomitant]
     Indication: HYPERTENSION
     Route: 048
     Dates: start: 2006
  5. CRESTOR /UNK/ [Concomitant]
     Indication: DYSLIPIDAEMIA
     Route: 048
     Dates: start: 2006
  6. LORAZEPAM [Concomitant]
     Indication: INSOMNIA
     Route: 048
     Dates: start: 201010

REACTIONS (5)
  - Toxic skin eruption [Recovered/Resolved]
  - Rash maculo-papular [Recovered/Resolved]
  - Pyrexia [Recovered/Resolved]
  - Underdose [Unknown]
  - Epidermal necrosis [Recovered/Resolved]
